FAERS Safety Report 17492766 (Version 1)
Quarter: 2020Q1

REPORT INFORMATION
  Report Type: Spontaneous
  Country: GB (occurrence: GB)
  Receive Date: 20200304
  Receipt Date: 20200304
  Transmission Date: 20200409
  Serious: Yes (Life-Threatening, Disabling)
  Sender: FDA-Public Use
  Company Number: GB-ACCORD-174259

PATIENT
  Age: 33 Year
  Sex: Male
  Weight: 90 kg

DRUGS (3)
  1. LANSOPRAZOLE. [Concomitant]
     Active Substance: LANSOPRAZOLE
  2. LEVETIRACETAM ACCORD [Suspect]
     Active Substance: LEVETIRACETAM
     Indication: SEIZURE
     Dosage: 1000 MG PER DAY (500 EVERY 12 HOURS)
     Route: 048
     Dates: start: 20190621, end: 20200112
  3. MIRTAZAPINE. [Concomitant]
     Active Substance: MIRTAZAPINE

REACTIONS (6)
  - Seizure [Unknown]
  - Anxiety [Recovering/Resolving]
  - Suicidal ideation [Recovering/Resolving]
  - Fear [Recovering/Resolving]
  - Depression [Recovering/Resolving]
  - Drug ineffective [Unknown]

NARRATIVE: CASE EVENT DATE: 20190621
